FAERS Safety Report 16583026 (Version 3)
Quarter: 2019Q3

REPORT INFORMATION
  Report Type: Spontaneous
  Country: US (occurrence: US)
  Receive Date: 20190717
  Receipt Date: 20190926
  Transmission Date: 20191004
  Serious: No
  Sender: FDA-Public Use
  Company Number: US-PFIZER INC-2019289678

PATIENT
  Age: 49 Year
  Sex: Female
  Weight: 123 kg

DRUGS (3)
  1. FELDENE [Suspect]
     Active Substance: PIROXICAM
     Indication: BACK PAIN
  2. FELDENE [Suspect]
     Active Substance: PIROXICAM
     Indication: FIBROMYALGIA
  3. FELDENE [Suspect]
     Active Substance: PIROXICAM
     Indication: ARTHRALGIA
     Dosage: 10 MG, 2X/DAY
     Route: 048
     Dates: start: 20190409

REACTIONS (2)
  - Weight decreased [Unknown]
  - Off label use [Unknown]
